FAERS Safety Report 7313608-0 (Version None)
Quarter: 2011Q1

REPORT INFORMATION
  Report Type: 
  Country: None (occurrence: None)
  Receive Date: 20110225
  Receipt Date: 20110215
  Transmission Date: 20110831
  Serious: Yes (Other)
  Sender: FDA-Public Use
  Company Number: US-PERRIGO-11US001323

PATIENT
  Sex: Male
  Weight: 12.245 kg

DRUGS (1)
  1. DIPHENHYDRAMINE HCL [Suspect]
     Indication: ACCIDENTAL DRUG INTAKE BY CHILD
     Dosage: 60-90 ML, SINGLE
     Route: 048
     Dates: start: 20110215, end: 20110215

REACTIONS (2)
  - SOMNOLENCE [None]
  - ACCIDENTAL OVERDOSE [None]
